FAERS Safety Report 5426169-8 (Version None)
Quarter: 2007Q3

REPORT INFORMATION
  Report Type: 
  Country: None (occurrence: None)
  Receive Date: 20070827
  Receipt Date: 20070823
  Transmission Date: 20080115
  Serious: Yes (Other)
  Sender: FDA-Public Use
  Company Number: A0661748A

PATIENT
  Age: 70 Year
  Sex: Male
  Weight: 87.3 kg

DRUGS (6)
  1. REQUIP [Suspect]
     Indication: DRUG USE FOR UNKNOWN INDICATION
     Route: 048
     Dates: start: 20040101
  2. ANTI-PARKINSON'S DISEASE MEDICATION [Concomitant]
     Indication: PARKINSON'S DISEASE
     Dates: end: 20051114
  3. ARTANE [Concomitant]
     Indication: TREMOR
     Dosage: 2MG THREE TIMES PER DAY
     Route: 048
     Dates: start: 20060302
  4. REMERON [Concomitant]
     Indication: TREMOR
     Dosage: 15MG AT NIGHT
     Route: 048
     Dates: start: 20070117
  5. ELDEPRYL [Concomitant]
     Indication: PARKINSON'S DISEASE
     Dosage: 5MG TWICE PER DAY
     Route: 048
     Dates: start: 20070523, end: 20070619
  6. MYSOLINE [Concomitant]
     Indication: TREMOR
     Dosage: 50MG AT NIGHT
     Route: 048
     Dates: start: 20051201, end: 20060302

REACTIONS (9)
  - DIARRHOEA [None]
  - FAECAL INCONTINENCE [None]
  - FLATULENCE [None]
  - GYNAECOMASTIA [None]
  - JOINT SWELLING [None]
  - MUSCULOSKELETAL DISORDER [None]
  - NAUSEA [None]
  - OEDEMA PERIPHERAL [None]
  - WEIGHT DECREASED [None]
